FAERS Safety Report 4428680-5 (Version None)
Quarter: 2004Q3

REPORT INFORMATION
  Report Type: 
  Country: None (occurrence: None)
  Receive Date: 20040818
  Receipt Date: 20031021
  Transmission Date: 20050211
  Serious: No
  Sender: FDA-Public Use
  Company Number: US-BRISTOL-MYERS SQUIBB COMPANY-12415527

PATIENT
  Age: 64 Year
  Sex: Female
  Weight: 118 kg

DRUGS (9)
  1. TEQUIN [Suspect]
     Indication: INFECTION
     Route: 048
     Dates: start: 20031016, end: 20031017
  2. ANCEF [Concomitant]
     Route: 051
  3. SINGULAIR [Concomitant]
  4. MULTI-VITAMIN [Concomitant]
  5. CALCIUM [Concomitant]
  6. SYNTHROID [Concomitant]
  7. TENORETIC 100 [Concomitant]
  8. DIOVAN [Concomitant]
  9. XANAX [Concomitant]

REACTIONS (2)
  - BLOOD PRESSURE INCREASED [None]
  - URTICARIA [None]
